FAERS Safety Report 19413498 (Version 2)
Quarter: 2021Q2

REPORT INFORMATION
  Report Type: Report from Study
  Country: US (occurrence: US)
  Receive Date: 20210614
  Receipt Date: 20210622
  Transmission Date: 20210717
  Serious: Yes (Life-Threatening, Hospitalization)
  Sender: FDA-Public Use
  Company Number: US-BRISTOL-MYERS SQUIBB COMPANY-BMS-2021-057262

PATIENT
  Age: 56 Year
  Sex: Female
  Weight: 80.27 kg

DRUGS (7)
  1. NIVOLUMAB [Suspect]
     Active Substance: NIVOLUMAB
     Indication: ENDOMETRIAL CANCER STAGE IV
     Dosage: 480 MILLIGRAM, Q4WK
     Route: 042
     Dates: start: 20201214, end: 20210503
  2. METFORMIN [Concomitant]
     Active Substance: METFORMIN HYDROCHLORIDE
     Indication: PRODUCT USED FOR UNKNOWN INDICATION
     Dosage: UNK
     Route: 065
     Dates: start: 20210528
  3. FLUOXETINE [Concomitant]
     Active Substance: FLUOXETINE HYDROCHLORIDE
     Indication: PRODUCT USED FOR UNKNOWN INDICATION
     Dosage: UNK
     Route: 065
     Dates: start: 20210503
  4. NIFEDIPINE. [Concomitant]
     Active Substance: NIFEDIPINE
     Indication: PRODUCT USED FOR UNKNOWN INDICATION
     Dosage: UNK
     Route: 065
     Dates: start: 20210311
  5. LUCITANIB. [Suspect]
     Active Substance: LUCITANIB
     Indication: ENDOMETRIAL CANCER STAGE IV
     Dosage: 6 MILLIGRAM, QD
     Route: 048
     Dates: start: 20201214, end: 20210527
  6. LEVOTHYROXINE. [Concomitant]
     Active Substance: LEVOTHYROXINE
     Indication: PRODUCT USED FOR UNKNOWN INDICATION
     Dosage: UNK
     Route: 065
     Dates: start: 20210503
  7. LISINOPRIL. [Concomitant]
     Active Substance: LISINOPRIL
     Indication: PRODUCT USED FOR UNKNOWN INDICATION
     Dosage: UNK
     Route: 065
     Dates: start: 20210301

REACTIONS (1)
  - Hyperglycaemia [Recovering/Resolving]

NARRATIVE: CASE EVENT DATE: 20210531
